FAERS Safety Report 16877713 (Version 1)
Quarter: 2019Q4

REPORT INFORMATION
  Report Type: Spontaneous
  Country: ES (occurrence: ES)
  Receive Date: 20191002
  Receipt Date: 20191002
  Transmission Date: 20200122
  Serious: Yes (Life-Threatening, Hospitalization, Other)
  Sender: FDA-Public Use
  Company Number: ES-TAKEDA-2019TUS054824

PATIENT
  Age: 47 Year
  Sex: Female

DRUGS (9)
  1. DEXAMETHASONE. [Suspect]
     Active Substance: DEXAMETHASONE
     Indication: PRIMARY AMYLOIDOSIS
     Dosage: UNK
     Route: 065
  2. PROPOFOL. [Suspect]
     Active Substance: PROPOFOL
     Indication: ANALGESIC THERAPY
     Dosage: 2 PERCENT, UNK
     Route: 065
  3. CYCLOPHOSPHAMIDE. [Suspect]
     Active Substance: CYCLOPHOSPHAMIDE
     Indication: PRIMARY AMYLOIDOSIS
     Dosage: UNK
     Route: 065
  4. AMOXICILLIN W/CLAVULANIC ACID [Suspect]
     Active Substance: AMOXICILLIN\CLAVULANIC ACID
     Indication: PRIMARY AMYLOIDOSIS
     Dosage: UNK UNK, Q8HR
     Route: 065
  5. DOXYCYCLINE. [Suspect]
     Active Substance: DOXYCYCLINE
     Indication: PRIMARY AMYLOIDOSIS
     Dosage: UNK
     Route: 065
  6. ACTOCORTIN /00028603/ [Suspect]
     Active Substance: HYDROCORTISONE SODIUM PHOSPHATE
     Indication: PRIMARY AMYLOIDOSIS
     Dosage: 20 MILLIGRAM, UNK
     Route: 065
  7. VELCADE [Suspect]
     Active Substance: BORTEZOMIB
     Indication: PRIMARY AMYLOIDOSIS
     Dosage: UNK
     Route: 065
  8. SEPTRIN [Suspect]
     Active Substance: SULFAMETHOXAZOLE\TRIMETHOPRIM
     Indication: PRIMARY AMYLOIDOSIS
     Dosage: UNK, QOD
     Route: 065
  9. ACICLOVIR [Suspect]
     Active Substance: ACYCLOVIR
     Indication: PRIMARY AMYLOIDOSIS
     Dosage: 250 MILLIGRAM, UNK
     Route: 065

REACTIONS (7)
  - Respiratory arrest [Unknown]
  - Seizure [Unknown]
  - Hemiplegia [Unknown]
  - Product use in unapproved indication [Unknown]
  - Pancreatitis [Unknown]
  - Biliary colic [Unknown]
  - Off label use [Unknown]
